FAERS Safety Report 14160673 (Version 1)
Quarter: 2017Q4

REPORT INFORMATION
  Report Type: Spontaneous
  Country: US (occurrence: US)
  Receive Date: 20171105
  Receipt Date: 20171105
  Transmission Date: 20180321
  Serious: No
  Sender: FDA-Public Use
  Company Number: US-SHIRE-US201719777

PATIENT
  Sex: Female
  Weight: 68.27 kg

DRUGS (2)
  1. LIALDA [Suspect]
     Active Substance: MESALAMINE
     Indication: COLITIS ULCERATIVE
     Dosage: 1.2 G, 3X/DAY:TID
     Route: 048
     Dates: start: 2009, end: 2012
  2. LIALDA [Suspect]
     Active Substance: MESALAMINE
     Dosage: 1.2 G, 4X/DAY:QID
     Dates: start: 2012

REACTIONS (2)
  - Exposure during pregnancy [Not Recovered/Not Resolved]
  - Weight increased [Not Recovered/Not Resolved]

NARRATIVE: CASE EVENT DATE: 2017
